FAERS Safety Report 11133014 (Version 3)
Quarter: 2015Q2

REPORT INFORMATION
  Report Type: Spontaneous
  Country: TR (occurrence: TR)
  Receive Date: 20150522
  Receipt Date: 20150604
  Transmission Date: 20150821
  Serious: Yes (Death, Hospitalization)
  Sender: FDA-Public Use
  Company Number: PHHY2015TR027709

PATIENT
  Age: 39 Year
  Sex: Male

DRUGS (2)
  1. AFINITOR [Suspect]
     Active Substance: EVEROLIMUS
     Dosage: 10 MG, QHS
     Route: 048
  2. AFINITOR [Suspect]
     Active Substance: EVEROLIMUS
     Indication: LUNG NEOPLASM MALIGNANT
     Dosage: 10 MG, QHS
     Route: 048

REACTIONS (7)
  - Wheezing [Fatal]
  - Pain [Fatal]
  - Pneumonia [Fatal]
  - Obstructive airways disorder [Fatal]
  - Dyspnoea [Fatal]
  - Drug ineffective [Unknown]
  - Off label use [Unknown]
